FAERS Safety Report 9434266 (Version 3)
Quarter: 2014Q2

REPORT INFORMATION
  Report Type: Spontaneous
  Country: CN (occurrence: CN)
  Receive Date: 20130801
  Receipt Date: 20140515
  Transmission Date: 20141212
  Serious: Yes (Hospitalization, Other)
  Sender: FDA-Public Use
  Company Number: PHHY2013CN071587

PATIENT
  Age: 75 Year
  Sex: Female
  Weight: 65 kg

DRUGS (2)
  1. ACLASTA [Suspect]
     Indication: OSTEOPOROSIS
     Dosage: 5 MG / 100ML PER DAY
     Route: 042
     Dates: start: 20130628, end: 20130628
  2. GLUCOSAMINE SULFATE [Concomitant]
     Dosage: 2 DF, TID
     Route: 048

REACTIONS (10)
  - Bronchitis [Unknown]
  - Cough [Not Recovered/Not Resolved]
  - Productive cough [Not Recovered/Not Resolved]
  - Back pain [Recovering/Resolving]
  - Peripheral swelling [Recovered/Resolved]
  - Pyrexia [Recovering/Resolving]
  - Hyperhidrosis [Unknown]
  - Oedema peripheral [Recovering/Resolving]
  - Malaise [Unknown]
  - Erythema [Unknown]
